FAERS Safety Report 4469792-X (Version None)
Quarter: 2004Q4

REPORT INFORMATION
  Report Type: 
  Country: None (occurrence: None)
  Receive Date: 20041008
  Receipt Date: 20041005
  Transmission Date: 20050328
  Serious: Yes (Hospitalization)
  Sender: FDA-Public Use
  Company Number: US-ROCHE-382595

PATIENT
  Sex: Male

DRUGS (1)
  1. XENICAL [Suspect]
     Indication: TYPE V HYPERLIPIDAEMIA
     Route: 048

REACTIONS (1)
  - PANCREATITIS [None]
